FAERS Safety Report 8784396 (Version 1)
Quarter: 2012Q4

REPORT INFORMATION
  Report Type: 
  Country: US (occurrence: US)
  Receive Date: 20120913
  Receipt Date: 20120913
  Transmission Date: 20130627
  Serious: No
  Sender: FDA-Public Use
  Company Number: US-PFIZER INC-2012220474

PATIENT
  Age: 71 Year
  Sex: Female

DRUGS (2)
  1. ATORVASTATIN CALCIUM [Suspect]
     Dosage: UNK
  2. SIMVASTATIN [Concomitant]
     Dosage: 80 mg per day

REACTIONS (4)
  - Tremor [Unknown]
  - Disorientation [Unknown]
  - Chest discomfort [Unknown]
  - Nausea [Unknown]
